FAERS Safety Report 9552349 (Version 1)
Quarter: 2013Q3

REPORT INFORMATION
  Report Type: Spontaneous
  Country: US (occurrence: None)
  Receive Date: 20130724
  Receipt Date: 20130724
  Transmission Date: 20140515
  Serious: Yes (Other)
  Sender: FDA-Public Use
  Company Number: PHEH2013US001856

PATIENT
  Sex: Female

DRUGS (3)
  1. GLEEVEC (IMATINIB) UNKNOWN [Suspect]
     Indication: CHRONIC MYELOID LEUKAEMIA
     Dates: end: 201201
  2. SPRYCEL (DASATINIB MONOHYDRATE) [Concomitant]
  3. TASIGNA (NILOTINIB HYDROCHLORIDE) [Concomitant]

REACTIONS (1)
  - Leukaemia recurrent [None]
